FAERS Safety Report 8004414-2 (Version None)
Quarter: 2011Q4

REPORT INFORMATION
  Report Type: 
  Country: None (occurrence: None)
  Receive Date: 20111223
  Receipt Date: 20111213
  Transmission Date: 20120403
  Serious: Yes (Other)
  Sender: FDA-Public Use
  Company Number: US-RANBAXY-2011RR-51227

PATIENT
  Sex: Male
  Weight: 75 kg

DRUGS (7)
  1. CIPROFLOXACIN [Suspect]
     Indication: INFLUENZA
     Dosage: UNK
     Route: 065
     Dates: start: 20080430
  2. PREDNISOLONE [Suspect]
     Dosage: UNK
     Dates: start: 20100205
  3. PREDNISOLONE [Suspect]
     Indication: CHRONIC OBSTRUCTIVE PULMONARY DISEASE
     Dosage: UNK
     Route: 065
     Dates: start: 20050930
  4. LEVAQUIN [Suspect]
     Indication: PNEUMONIA
     Dosage: UNK
     Route: 048
     Dates: start: 20100201, end: 20100205
  5. LEVAQUIN [Suspect]
     Indication: CHRONIC OBSTRUCTIVE PULMONARY DISEASE
     Dosage: UNK
     Route: 048
     Dates: start: 20100205
  6. PREDNISOLONE [Suspect]
     Indication: PNEUMONIA
     Dosage: UNK
     Dates: start: 20080430
  7. PREDNISOLONE [Suspect]
     Dosage: UNK
     Dates: start: 20080507

REACTIONS (3)
  - TENDON RUPTURE [None]
  - TENDON DISORDER [None]
  - PLANTAR FASCIITIS [None]
